FAERS Safety Report 10669147 (Version 5)
Quarter: 2015Q1

REPORT INFORMATION
  Report Type: Report from Study
  Country: US (occurrence: US)
  Receive Date: 20141222
  Receipt Date: 20150309
  Transmission Date: 20150720
  Serious: Yes (Other)
  Sender: FDA-Public Use
  Company Number: US-SA-2014SA173666

PATIENT
  Age: 32 Year
  Sex: Female

DRUGS (3)
  1. ZOLOFT [Concomitant]
     Active Substance: SERTRALINE HYDROCHLORIDE
  2. AUBAGIO [Suspect]
     Active Substance: TERIFLUNOMIDE
     Indication: MULTIPLE SCLEROSIS
     Route: 048
     Dates: start: 20141202, end: 20141206
  3. AUBAGIO [Suspect]
     Active Substance: TERIFLUNOMIDE
     Indication: MULTIPLE SCLEROSIS
     Route: 048
     Dates: end: 20150114

REACTIONS (9)
  - Photophobia [Unknown]
  - Multiple sclerosis relapse [Unknown]
  - Synovial cyst [Unknown]
  - Migraine [Unknown]
  - Nausea [Unknown]
  - Influenza like illness [Unknown]
  - Central nervous system lesion [Unknown]
  - Dysarthria [Unknown]
  - Drug dose omission [Unknown]
